FAERS Safety Report 5518312-7 (Version None)
Quarter: 2007Q4

REPORT INFORMATION
  Report Type: 
  Country: None (occurrence: None)
  Receive Date: 20071115
  Receipt Date: 20071108
  Transmission Date: 20080405
  Serious: Yes (Hospitalization)
  Sender: FDA-Public Use
  Company Number: FR-AVENTIS-200715243EU

PATIENT
  Age: 80 Year
  Sex: Female
  Weight: 82 kg

DRUGS (7)
  1. FLUDEX                             /00340101/ [Suspect]
     Indication: HYPERTENSION
     Route: 048
     Dates: end: 20070913
  2. SELOKEN                            /00376902/ [Suspect]
     Indication: DRUG USE FOR UNKNOWN INDICATION
     Route: 048
     Dates: end: 20070913
  3. RAMIPRIL [Suspect]
     Indication: HYPERTENSION
     Route: 048
     Dates: end: 20070913
  4. TRINITRIN [Suspect]
     Indication: DRUG USE FOR UNKNOWN INDICATION
     Dosage: DOSE: 1 DF
     Route: 048
     Dates: start: 20070913, end: 20070913
  5. TRINITRIN [Suspect]
     Route: 061
  6. TAHOR [Concomitant]
     Dates: end: 20070913
  7. PLAVIX [Concomitant]

REACTIONS (3)
  - DRUG INTERACTION [None]
  - ORTHOSTATIC HYPOTENSION [None]
  - SYNCOPE VASOVAGAL [None]
